FAERS Safety Report 21205809 (Version 1)
Quarter: 2022Q3

REPORT INFORMATION
  Report Type: Spontaneous
  Country: US (occurrence: US)
  Receive Date: 20220812
  Receipt Date: 20220812
  Transmission Date: 20221027
  Serious: Yes (Other)
  Sender: FDA-Public Use
  Company Number: US-JNJFOC-20220810904

PATIENT
  Sex: Male

DRUGS (2)
  1. MOTRIN [Suspect]
     Active Substance: IBUPROFEN
     Indication: Product used for unknown indication
     Route: 065
  2. VIAGRA [Suspect]
     Active Substance: SILDENAFIL CITRATE
     Indication: Erectile dysfunction
     Dosage: 4 TABLETS OF 100 MG AND THOUGHT IT^S 25 MG. PATIENT STATES THE PHARMACIST GAVE HIM 100 MG INSTEAD.
     Route: 065

REACTIONS (2)
  - Dysuria [Unknown]
  - Bladder catheterisation [Unknown]
